FAERS Safety Report 4277659-5 (Version None)
Quarter: 2004Q1

REPORT INFORMATION
  Report Type: 
  Country: None (occurrence: None)
  Receive Date: 20040121
  Receipt Date: 20040112
  Transmission Date: 20041129
  Serious: Yes (Other)
  Sender: FDA-Public Use
  Company Number: 2003112773

PATIENT
  Sex: Female

DRUGS (6)
  1. ZITHROMAX [Suspect]
     Indication: ILL-DEFINED DISORDER
     Dosage: ORAL
     Route: 048
     Dates: start: 20030127, end: 20030131
  2. BUDESONIDE (BUDESONIDE) [Concomitant]
  3. PIRBUTEROL ACETATE (PIRBUTEROL ACETATE) [Concomitant]
  4. ESOMEPRAZOLE (ESOMEPRAZOLE) [Concomitant]
  5. CETIRIZINE HCL [Concomitant]
  6. MOMETASONE FUROATE (MOMETASONE FUROATE) [Concomitant]

REACTIONS (6)
  - DYSPHAGIA [None]
  - DYSPNOEA [None]
  - HYPERSENSITIVITY [None]
  - ODYNOPHAGIA [None]
  - OROPHARYNGEAL SWELLING [None]
  - PHARYNGOLARYNGEAL PAIN [None]
